FAERS Safety Report 19212186 (Version 2)
Quarter: 2021Q2

REPORT INFORMATION
  Report Type: Spontaneous
  Country: US (occurrence: US)
  Receive Date: 20210504
  Receipt Date: 20210510
  Transmission Date: 20210717
  Serious: No
  Sender: FDA-Public Use
  Company Number: US-PFIZER INC-2021162238

PATIENT
  Age: 42 Year
  Sex: Female
  Weight: 67.59 kg

DRUGS (2)
  1. LATANOPROST. [Suspect]
     Active Substance: LATANOPROST
     Dosage: UNK
  2. LATANOPROST. [Suspect]
     Active Substance: LATANOPROST
     Indication: GLAUCOMA
     Dosage: 2 DROP, 1X/DAY (ONE DROP IN EACH EYE NIGHTLY)
     Route: 047
     Dates: start: 2020, end: 202101

REACTIONS (10)
  - Diarrhoea [Recovering/Resolving]
  - Muscle disorder [Recovering/Resolving]
  - Gastrooesophageal reflux disease [Not Recovered/Not Resolved]
  - Constipation [Recovering/Resolving]
  - Gastrointestinal disorder [Recovering/Resolving]
  - Dysphagia [Not Recovered/Not Resolved]
  - Asthma [Recovering/Resolving]
  - Palpitations [Not Recovered/Not Resolved]
  - Respiratory disorder [Recovering/Resolving]
  - Duodenogastric reflux [Recovering/Resolving]

NARRATIVE: CASE EVENT DATE: 20200901
